FAERS Safety Report 8054114-8 (Version None)
Quarter: 2012Q1

REPORT INFORMATION
  Report Type: 
  Country: None (occurrence: None)
  Receive Date: 20120118
  Receipt Date: 20120113
  Transmission Date: 20120608
  Serious: Yes (Disabling, Other)
  Sender: FDA-Public Use
  Company Number: US-B.I. PHARMACEUTICALS,INC./RIDGEFIELD-2012-BP-00895PF

PATIENT
  Sex: Female
  Weight: 63.5 kg

DRUGS (4)
  1. NORVASC [Suspect]
     Dosage: 5 MG
  2. SPIRIVA [Suspect]
     Indication: LUNG DISORDER
  3. ADVAIR DISKUS 100/50 [Concomitant]
     Indication: LUNG DISORDER
  4. PREMARIN [Suspect]
     Indication: HOT FLUSH
     Dosage: 0.625 MG

REACTIONS (5)
  - DISABILITY [None]
  - PHARYNGEAL DISORDER [None]
  - SPINAL DISORDER [None]
  - SURGERY [None]
  - NECK PAIN [None]
